FAERS Safety Report 7090788-6 (Version None)
Quarter: 2010Q4

REPORT INFORMATION
  Report Type: 
  Country: None (occurrence: None)
  Receive Date: 20101109
  Receipt Date: 20101103
  Transmission Date: 20110411
  Serious: Yes (Other)
  Sender: FDA-Public Use
  Company Number: BE-BRISTOL-MYERS SQUIBB COMPANY-15368970

PATIENT
  Sex: Male

DRUGS (1)
  1. SPRYCEL [Suspect]
     Dosage: DOSE REDUCED TO 70MG

REACTIONS (2)
  - ARTHRITIS [None]
  - POLYARTHRITIS [None]
